FAERS Safety Report 5826446-2 (Version None)
Quarter: 2008Q3

REPORT INFORMATION
  Report Type: 
  Country: None (occurrence: None)
  Receive Date: 20080729
  Receipt Date: 20080717
  Transmission Date: 20090109
  Serious: Yes (Hospitalization, Disabling, Other)
  Sender: FDA-Public Use
  Company Number: US-PFIZER INC-2008053938

PATIENT
  Sex: Female
  Weight: 72.6 kg

DRUGS (8)
  1. SUTENT [Suspect]
     Indication: RENAL CANCER
     Route: 048
  2. DURAGESIC-100 [Concomitant]
     Route: 062
  3. LIPITOR [Concomitant]
  4. GLIPIZIDE [Concomitant]
  5. LISINOPRIL [Concomitant]
  6. METFORMIN HCL [Concomitant]
  7. HYDROCHLOROTHIAZIDE [Concomitant]
  8. VOLTAREN [Concomitant]

REACTIONS (5)
  - ASTHENIA [None]
  - FAILURE TO THRIVE [None]
  - HYPOPHAGIA [None]
  - LARGE INTESTINE PERFORATION [None]
  - MENTAL STATUS CHANGES [None]
